FAERS Safety Report 17499883 (Version 1)
Quarter: 2020Q1

REPORT INFORMATION
  Report Type: Spontaneous
  Country: IT (occurrence: IT)
  Receive Date: 20200305
  Receipt Date: 20200305
  Transmission Date: 20200409
  Serious: Yes (Other)
  Sender: FDA-Public Use
  Company Number: IT-UCBSA-2020008156

PATIENT
  Age: 59 Year
  Sex: Male

DRUGS (1)
  1. NEUPRO [Suspect]
     Active Substance: ROTIGOTINE
     Indication: PRODUCT USED FOR UNKNOWN INDICATION
     Dosage: STRENGTH: 8 MILLIGRAM

REACTIONS (2)
  - Tongue pruritus [Not Recovered/Not Resolved]
  - Tongue erythema [Not Recovered/Not Resolved]

NARRATIVE: CASE EVENT DATE: 20200221
